FAERS Safety Report 8514408-6 (Version None)
Quarter: 2012Q2

REPORT INFORMATION
  Report Type: 
  Country: None (occurrence: None)
  Receive Date: 20120406
  Receipt Date: 20110104
  Transmission Date: 20120825
  Serious: Yes (Other)
  Sender: FDA-Public Use
  Company Number: PHHY2011US00590

PATIENT
  Sex: Female

DRUGS (2)
  1. TASIGNA [Suspect]
     Dosage: 200 MG, BID, ORAL
     Route: 048
     Dates: start: 20101001
  2. CLARITIN [Concomitant]

REACTIONS (3)
  - PRURITUS [None]
  - ORAL HERPES [None]
  - RASH [None]
